FAERS Safety Report 9017279 (Version 4)
Quarter: 2014Q2

REPORT INFORMATION
  Report Type: Spontaneous
  Country: US (occurrence: US)
  Receive Date: 20130117
  Receipt Date: 20140625
  Transmission Date: 20141212
  Serious: Yes (Hospitalization)
  Sender: FDA-Public Use
  Company Number: US-PFIZER INC-2013014651

PATIENT
  Age: 83 Year
  Sex: Female
  Weight: 53.15 kg

DRUGS (3)
  1. CELEBREX [Suspect]
     Indication: ARTHRITIS
     Dosage: 200 MG, DAILY
  2. GLUCOTROL [Suspect]
     Dosage: UNK
  3. ACCUPRIL [Suspect]
     Dosage: UNK

REACTIONS (3)
  - Gastroenteritis salmonella [Recovered/Resolved]
  - Blood glucose increased [Unknown]
  - Pain [Unknown]
